FAERS Safety Report 25364455 (Version 1)
Quarter: 2025Q2

REPORT INFORMATION
  Report Type: Spontaneous
  Country: TW (occurrence: TW)
  Receive Date: 20250527
  Receipt Date: 20250527
  Transmission Date: 20250717
  Serious: Yes (Life-Threatening, Other)
  Sender: PFIZER
  Company Number: TW-PFIZER INC-PV202500062826

PATIENT
  Age: 47 Year
  Sex: Male
  Weight: 64.3 kg

DRUGS (3)
  1. METHOTREXATE SODIUM [Suspect]
     Active Substance: METHOTREXATE SODIUM
     Indication: Rheumatoid arthritis
     Dates: start: 20250422, end: 20250503
  2. HYDROXYCHLOROQUINE SULFATE [Concomitant]
     Active Substance: HYDROXYCHLOROQUINE SULFATE
     Indication: Rheumatoid arthritis
     Dates: start: 20250422, end: 20250503
  3. ACTEMRA [Concomitant]
     Active Substance: TOCILIZUMAB
     Indication: Rheumatoid arthritis
     Route: 058
     Dates: start: 20250422

REACTIONS (22)
  - Rash [Recovering/Resolving]
  - Stevens-Johnson syndrome [Recovering/Resolving]
  - Neutropenia [Recovering/Resolving]
  - Thrombocytopenia [Recovering/Resolving]
  - Anaemia [Recovering/Resolving]
  - Pancytopenia [Recovering/Resolving]
  - Leukopenia [Recovering/Resolving]
  - Septic shock [Unknown]
  - Pneumonia [Unknown]
  - Pulmonary oedema [Unknown]
  - Lung infiltration [Unknown]
  - Drug reaction with eosinophilia and systemic symptoms [Unknown]
  - Abdominal infection [Unknown]
  - Pneumothorax [Unknown]
  - Biliary fistula [Unknown]
  - Pneumocystis jirovecii pneumonia [Unknown]
  - White blood cell count increased [Unknown]
  - Chronic myeloid leukaemia [Unknown]
  - Myeloproliferative neoplasm [Unknown]
  - Eating disorder [Recovered/Resolved]
  - Hypersensitivity [Unknown]
  - Drug eruption [Unknown]

NARRATIVE: CASE EVENT DATE: 20250509
